FAERS Safety Report 8791817 (Version 3)
Quarter: 2013Q1

REPORT INFORMATION
  Report Type: Spontaneous
  Country: US (occurrence: US)
  Receive Date: 20120918
  Receipt Date: 20130327
  Transmission Date: 20140127
  Serious: No
  Sender: FDA-Public Use
  Company Number: US-ASTRAZENECA-2012SE70116

PATIENT
  Age: 44 Year
  Sex: Female
  Weight: 67.1 kg

DRUGS (9)
  1. SEROQUEL XR [Suspect]
     Indication: BIPOLAR DISORDER
     Route: 048
     Dates: start: 2011
  2. SEROQUEL XR [Suspect]
     Indication: BIPOLAR DISORDER
     Route: 048
     Dates: start: 2012, end: 20130209
  3. SEROQUEL XR [Suspect]
     Indication: BIPOLAR DISORDER
     Route: 048
     Dates: start: 201209, end: 201302
  4. SEROQUEL XR [Suspect]
     Indication: BIPOLAR DISORDER
     Route: 048
     Dates: start: 20130209
  5. SEROQUEL XR [Suspect]
     Indication: BIPOLAR DISORDER
     Route: 048
  6. DEPAKOTE [Concomitant]
     Indication: BIPOLAR DISORDER
  7. CLONAZEPAM [Concomitant]
     Indication: MUSCLE TWITCHING
  8. TYLENOL [Concomitant]
     Indication: BACK PAIN
  9. FLEXERIL [Concomitant]
     Indication: BACK PAIN

REACTIONS (8)
  - Feeling abnormal [Unknown]
  - Mania [Recovered/Resolved]
  - Feeling abnormal [Recovered/Resolved]
  - Somnambulism [Recovered/Resolved]
  - Weight increased [Unknown]
  - Bipolar disorder [Unknown]
  - Drug dose omission [Unknown]
  - Off label use [Unknown]
